FAERS Safety Report 10485755 (Version 28)
Quarter: 2018Q2

REPORT INFORMATION
  Report Type: Report from Study
  Country: FR (occurrence: FR)
  Receive Date: 20141001
  Receipt Date: 20180609
  Transmission Date: 20180711
  Serious: Yes (Hospitalization, Other)
  Sender: FDA-Public Use
  Company Number: FR-ROCHE-1466112

PATIENT
  Age: 74 Year
  Sex: Male
  Weight: 68 kg

DRUGS (54)
  1. BENDAMUSTINE [Suspect]
     Active Substance: BENDAMUSTINE
     Dosage: C3D1
     Route: 042
     Dates: start: 20140324, end: 20140324
  2. BENDAMUSTINE [Suspect]
     Active Substance: BENDAMUSTINE
     Dosage: C4D1
     Route: 042
     Dates: start: 20140422, end: 20140422
  3. NOVONORM [Concomitant]
     Active Substance: REPAGLINIDE
     Dosage: 0-0-2 PER DAY
     Route: 048
     Dates: start: 20140130, end: 20140130
  4. NOVONORM [Concomitant]
     Active Substance: REPAGLINIDE
     Dosage: 2-1-2 PER DAY
     Route: 048
     Dates: start: 20140131
  5. STAGID [Concomitant]
     Active Substance: METFORMIN PAMOATE
     Route: 048
     Dates: start: 20140129, end: 20140130
  6. ZOPHREN [Concomitant]
     Active Substance: ONDANSETRON
     Indication: PROPHYLAXIS
     Route: 042
     Dates: start: 20140128, end: 20140131
  7. COVERAM [Concomitant]
     Active Substance: AMLODIPINE\PERINDOPRIL
     Route: 048
     Dates: start: 20140203
  8. FLUDEX (FRANCE) [Concomitant]
     Active Substance: INDAPAMIDE
     Route: 048
     Dates: start: 20140203
  9. DEXERYL (FRANCE) [Concomitant]
     Active Substance: GLYCERIN\PARAFFIN
     Dosage: TRANSCUTANEOUS
     Route: 050
     Dates: start: 20140401, end: 20140716
  10. ACYCLOVIR. [Concomitant]
     Active Substance: ACYCLOVIR
     Indication: PROPHYLAXIS
     Route: 048
     Dates: start: 20140423
  11. OBINUTUZUMAB. [Suspect]
     Active Substance: OBINUTUZUMAB
     Dosage: C1D8 NO ANTI-HYPERTENSIVE MEDICATION TAKEN WITHIN 12 HOURS PRIOR TO INFUSION, C1D8, PLANNED INITIAL
     Route: 042
     Dates: start: 20140204, end: 20140204
  12. OBINUTUZUMAB. [Suspect]
     Active Substance: OBINUTUZUMAB
     Dosage: C4D1 ANTI-HYPERTENSIVE MEDICATION TAKEN WITHIN 12 HOURS PRIOR TO INFUSION, PLANNED INITIAL INFUSION
     Route: 042
     Dates: start: 20140422, end: 20140422
  13. BENDAMUSTINE [Suspect]
     Active Substance: BENDAMUSTINE
     Indication: CHRONIC LYMPHOCYTIC LEUKAEMIA
     Dosage: C1D1 (160 MG)?LAST DOSE PRIOR TO SAE: 17/JUN/2014; PLANNED DOSE AND ACTUAL DOSE WAS 90 MG/M2, C1D1,
     Route: 042
     Dates: start: 20140128, end: 20140128
  14. BENDAMUSTINE [Suspect]
     Active Substance: BENDAMUSTINE
     Dosage: C1D2
     Route: 042
     Dates: start: 20140130, end: 20140130
  15. BENDAMUSTINE [Suspect]
     Active Substance: BENDAMUSTINE
     Dosage: C6D1
     Route: 042
     Dates: start: 20140616, end: 20140616
  16. NOVONORM [Concomitant]
     Active Substance: REPAGLINIDE
     Indication: DIABETES MELLITUS
     Dosage: 2-1-2 PER DAY
     Route: 048
     Dates: end: 20140128
  17. FASTURTEC [Concomitant]
     Active Substance: RASBURICASE
     Indication: PROPHYLAXIS
     Route: 042
     Dates: start: 20140128, end: 20140130
  18. INSULIN [Concomitant]
     Active Substance: INSULIN NOS
     Route: 058
     Dates: start: 20140129, end: 20140130
  19. DAFALGAN [Concomitant]
     Active Substance: ACETAMINOPHEN
     Route: 042
     Dates: start: 20140211, end: 20140211
  20. GRANOCYTE 34 [Concomitant]
     Active Substance: LENOGRASTIM
     Indication: PROPHYLAXIS
     Route: 058
     Dates: start: 20140206, end: 20140210
  21. OBINUTUZUMAB. [Suspect]
     Active Substance: OBINUTUZUMAB
     Dosage: C6D1 (LAST DOSE PRIOR TO EVENT), ANTI-HYPERTENSIVE MEDICATION TAKEN WITHIN 12 HOURS PRIOR TO INFUSIO
     Route: 042
     Dates: start: 20140616, end: 20140616
  22. BENDAMUSTINE [Suspect]
     Active Substance: BENDAMUSTINE
     Dosage: C6D2
     Route: 042
     Dates: start: 20140617, end: 20140617
  23. TAHOR [Concomitant]
     Active Substance: ATORVASTATIN CALCIUM
     Indication: DYSLIPIDAEMIA
     Route: 048
     Dates: end: 20140128
  24. SOLU-MEDROL [Concomitant]
     Active Substance: METHYLPREDNISOLONE SODIUM SUCCINATE
     Indication: PROPHYLAXIS
     Route: 042
     Dates: start: 20140128, end: 20140616
  25. POLARAMINE [Concomitant]
     Active Substance: DEXCHLORPHENIRAMINE MALEATE
     Route: 042
     Dates: start: 20140211, end: 20140211
  26. ZELITREX [Concomitant]
     Active Substance: VALACYCLOVIR HYDROCHLORIDE
     Indication: PROPHYLAXIS
     Route: 048
     Dates: start: 20140206, end: 20140422
  27. OBINUTUZUMAB. [Suspect]
     Active Substance: OBINUTUZUMAB
     Indication: CHRONIC LYMPHOCYTIC LEUKAEMIA
     Dosage: C1D1NO ANTI-HYPERTENSIVE MEDICATION TAKEN WITHIN 12 HOURS PRIOR TO INFUSION, C1D1, PLANNED INITIAL I
     Route: 042
     Dates: start: 20140128, end: 20140128
  28. OBINUTUZUMAB. [Suspect]
     Active Substance: OBINUTUZUMAB
     Dosage: C1D2 NO ANTI-HYPERTENSIVE MEDICATION TAKEN WITHIN 12 HOURS PRIOR TO INFUSION, C1D2, PLANNED INITIAL
     Route: 042
     Dates: start: 20140129, end: 20140129
  29. BENDAMUSTINE [Suspect]
     Active Substance: BENDAMUSTINE
     Dosage: C2D1
     Route: 042
     Dates: start: 20140224, end: 20140224
  30. STAGID [Concomitant]
     Active Substance: METFORMIN PAMOATE
     Indication: DIABETES MELLITUS
     Route: 048
     Dates: end: 20140128
  31. PENTACARINAT [Concomitant]
     Active Substance: PENTAMIDINE ISETHIONATE
     Indication: PROPHYLAXIS
     Dosage: INTRANASAL
     Route: 050
     Dates: start: 20140423, end: 20140423
  32. OBINUTUZUMAB. [Suspect]
     Active Substance: OBINUTUZUMAB
     Dosage: C1D15 NO ANTI-HYPERTENSIVE MEDICATION TAKEN WITHIN 12 HOURS PRIOR TO INFUSION, PLANNED INITIAL INFUS
     Route: 042
     Dates: start: 20140211, end: 20140211
  33. OBINUTUZUMAB. [Suspect]
     Active Substance: OBINUTUZUMAB
     Dosage: C2D1 ANTI-HYPERTENSIVE MEDICATION TAKEN WITHIN 12 HOURS PRIOR TO INFUSION, PLANNED INITIAL INFUSION
     Route: 042
     Dates: start: 20140224, end: 20140224
  34. OBINUTUZUMAB. [Suspect]
     Active Substance: OBINUTUZUMAB
     Dosage: C3D1 ANTI-HYPERTENSIVE MEDICATION TAKEN WITHIN 12 HOURS PRIOR TO INFUSION, PLANNED INITIAL INFUSION
     Route: 042
     Dates: start: 20140324, end: 20140324
  35. OBINUTUZUMAB. [Suspect]
     Active Substance: OBINUTUZUMAB
     Dosage: C5D1 ANTI-HYPERTENSIVE MEDICATION TAKEN WITHIN 12 HOURS PRIOR TO INFUSION, PLANNED INITIAL INFUSION
     Route: 042
     Dates: start: 20140519, end: 20140519
  36. BENDAMUSTINE [Suspect]
     Active Substance: BENDAMUSTINE
     Dosage: C5D2
     Route: 042
     Dates: start: 20140520, end: 20140520
  37. NOVONORM [Concomitant]
     Active Substance: REPAGLINIDE
     Dosage: 2-1-0PER DAY
     Route: 048
     Dates: start: 20140129, end: 20140129
  38. STAGID [Concomitant]
     Active Substance: METFORMIN PAMOATE
     Route: 048
     Dates: start: 20140131, end: 20140219
  39. BISOPROLOL [Concomitant]
     Active Substance: BISOPROLOL
     Indication: HYPERTENSION
     Route: 048
  40. POLARAMINE [Concomitant]
     Active Substance: DEXCHLORPHENIRAMINE MALEATE
     Indication: PROPHYLAXIS
     Route: 042
     Dates: start: 20140128, end: 20140616
  41. LANTUS [Concomitant]
     Active Substance: INSULIN GLARGINE
     Route: 042
     Dates: start: 20140129, end: 20140130
  42. INSULIN [Concomitant]
     Active Substance: INSULIN NOS
     Route: 058
     Dates: start: 20160612
  43. BENDAMUSTINE [Suspect]
     Active Substance: BENDAMUSTINE
     Dosage: C3D2
     Route: 042
     Dates: start: 20140325, end: 20140325
  44. BENDAMUSTINE [Suspect]
     Active Substance: BENDAMUSTINE
     Dosage: C5D1
     Route: 042
     Dates: start: 20140519, end: 20140519
  45. PLAVIX [Concomitant]
     Active Substance: CLOPIDOGREL BISULFATE
     Indication: MYOCARDIAL INFARCTION
     Route: 048
  46. FASTURTEC [Concomitant]
     Active Substance: RASBURICASE
     Route: 042
     Dates: start: 20140204, end: 20140204
  47. COVERAM [Concomitant]
     Active Substance: AMLODIPINE\PERINDOPRIL
     Dosage: 1 ON MORNING
     Route: 048
     Dates: end: 20140127
  48. SALINE [Concomitant]
     Active Substance: SODIUM CHLORIDE
     Route: 042
     Dates: start: 20140129
  49. BENDAMUSTINE [Suspect]
     Active Substance: BENDAMUSTINE
     Dosage: C2D2
     Route: 042
     Dates: start: 20140225, end: 20140225
  50. BENDAMUSTINE [Suspect]
     Active Substance: BENDAMUSTINE
     Dosage: C4D2
     Route: 042
     Dates: start: 20140423, end: 20140423
  51. PARACETAMOL [Concomitant]
     Active Substance: ACETAMINOPHEN
     Indication: PROPHYLAXIS
     Route: 042
     Dates: start: 20140128, end: 20140616
  52. FLUDEX (FRANCE) [Concomitant]
     Active Substance: INDAPAMIDE
     Route: 048
     Dates: end: 20140127
  53. METFORMIN [Concomitant]
     Active Substance: METFORMIN HYDROCHLORIDE
     Route: 048
     Dates: start: 20140220
  54. BACTRIM [Concomitant]
     Active Substance: SULFAMETHOXAZOLE\TRIMETHOPRIM
     Indication: PROPHYLAXIS
     Route: 048
     Dates: start: 20140206, end: 20140422

REACTIONS (4)
  - Metastatic squamous cell carcinoma [Recovered/Resolved]
  - Squamous cell carcinoma [Recovered/Resolved]
  - Diabetes mellitus inadequate control [Recovered/Resolved with Sequelae]
  - Basal cell carcinoma [Recovered/Resolved]

NARRATIVE: CASE EVENT DATE: 20140826
